FAERS Safety Report 7969959-X (Version None)
Quarter: 2011Q4

REPORT INFORMATION
  Report Type: 
  Country: None (occurrence: None)
  Receive Date: 20111122
  Receipt Date: 20110829
  Transmission Date: 20120403
  Serious: No
  Sender: FDA-Public Use
  Company Number: PHEH2011US02254

PATIENT
  Age: 45 Year
  Sex: Female

DRUGS (2)
  1. GILENYA [Suspect]
     Indication: MULTIPLE SCLEROSIS
     Dosage: 1 DF, QD, ORAL
     Route: 048
     Dates: start: 20110809
  2. SYNTHROID [Concomitant]

REACTIONS (5)
  - MUSCLE TIGHTNESS [None]
  - HYPOAESTHESIA [None]
  - VISION BLURRED [None]
  - PARAESTHESIA [None]
  - HEAD DISCOMFORT [None]
